FAERS Safety Report 4334456-X (Version None)
Quarter: 2004Q2

REPORT INFORMATION
  Report Type: 
  Country: None (occurrence: None)
  Receive Date: 20040407
  Receipt Date: 20020204
  Transmission Date: 20050107
  Serious: Yes (Hospitalization)
  Sender: FDA-Public Use
  Company Number: US-MERCK-0202USA00319

PATIENT
  Age: 55 Year
  Sex: Male

DRUGS (1)
  1. VIOXX [Suspect]
     Indication: BACK PAIN
     Route: 048
     Dates: start: 20010726, end: 20011026

REACTIONS (12)
  - ARTERY DISSECTION [None]
  - BACK PAIN [None]
  - BASILAR ARTERY STENOSIS [None]
  - CARDIAC DISORDER [None]
  - CEREBROVASCULAR ACCIDENT [None]
  - DRUG INEFFECTIVE [None]
  - EMBOLIC STROKE [None]
  - HAEMOGLOBIN ABNORMAL [None]
  - PROTHROMBIN TIME PROLONGED [None]
  - VENTRICULAR HYPERTROPHY [None]
  - VERTEBRAL ARTERY STENOSIS [None]
  - VERTEBROBASILAR INSUFFICIENCY [None]
